FAERS Safety Report 8418520-1 (Version None)
Quarter: 2012Q2

REPORT INFORMATION
  Report Type: 
  Country: None (occurrence: None)
  Receive Date: 20120530
  Receipt Date: 20120511
  Transmission Date: 20120825
  Serious: Yes (Hospitalization)
  Sender: FDA-Public Use
  Company Number: 2012-245

PATIENT
  Age: 28 Year
  Sex: Male

DRUGS (7)
  1. DIVALPROEX (VALPROATE SEMISODIUM) [Concomitant]
  2. BENZTROPINE MESYLATE [Concomitant]
  3. CLOZAPINE [Suspect]
     Indication: SCHIZOAFFECTIVE DISORDER
     Dosage: 12.5-125 MG, QD, ORAL
     Route: 048
     Dates: start: 20080101, end: 20080101
  4. HALOPERIDOL [Concomitant]
  5. PERPHENAZINE [Concomitant]
  6. LITHIUM CARBONATE [Suspect]
  7. AMOXICILLIN AND CLAVULANATE POTASSIUM (AMOXICILLIN TRIHYDRATE, CLAVULA [Concomitant]

REACTIONS (6)
  - VIRAL INFECTION [None]
  - HEADACHE [None]
  - DRUG INTERACTION [None]
  - RENAL FAILURE ACUTE [None]
  - URINARY TRACT INFECTION [None]
  - SINUSITIS [None]
